FAERS Safety Report 10216733 (Version 1)
Quarter: 2014Q2

REPORT INFORMATION
  Report Type: Spontaneous
  Country: ES (occurrence: ES)
  Receive Date: 20140604
  Receipt Date: 20140604
  Transmission Date: 20141212
  Serious: Yes (Other)
  Sender: FDA-Public Use
  Company Number: ES-ASTRAZENECA-2014SE36746

PATIENT
  Age: 27 Year
  Sex: Male

DRUGS (3)
  1. SYMBICORT TURBUHALER [Suspect]
     Dosage: LATENCY: 2 DAYS, 160/4.5 MCG BID
     Route: 055
     Dates: start: 20140509, end: 20140513
  2. AFLUON [Suspect]
     Indication: NASAL CONGESTION
     Dosage: LATENCY: 10 DAYS, 1 MG/ML 40 ML THREE TIMES A DAY
     Route: 055
     Dates: start: 20140501, end: 20140511
  3. LORATADINE [Suspect]
     Indication: HYPERSENSITIVITY
     Dosage: LATENCY: 10 DAYS, DAILY
     Route: 048
     Dates: start: 20140501, end: 20140509

REACTIONS (4)
  - Somnolence [Not Recovered/Not Resolved]
  - Sensory disturbance [Not Recovered/Not Resolved]
  - Coordination abnormal [Not Recovered/Not Resolved]
  - Dizziness [Not Recovered/Not Resolved]
